FAERS Safety Report 8018730-1 (Version None)
Quarter: 2012Q1

REPORT INFORMATION
  Report Type: 
  Country: None (occurrence: None)
  Receive Date: 20120103
  Receipt Date: 20111220
  Transmission Date: 20120608
  Serious: Yes (Hospitalization)
  Sender: FDA-Public Use
  Company Number: JP-UCBSA-047072

PATIENT
  Age: 13 Year
  Sex: Male
  Weight: 50 kg

DRUGS (5)
  1. TEGRETOL [Concomitant]
     Dosage: 200 MG DAILY
     Route: 048
     Dates: start: 20111130, end: 20111202
  2. KEPPRA [Suspect]
     Indication: EPILEPSY
     Route: 048
     Dates: start: 20111129, end: 20111129
  3. NOBELBAR [Concomitant]
     Dates: start: 20111124, end: 20111202
  4. TEGRETOL [Concomitant]
     Dosage: DAILY DOSE 3000 MG
     Route: 048
     Dates: start: 20111124, end: 20111126
  5. TEGRETOL [Concomitant]
     Dosage: DAILY DOSE 400 MG
     Route: 048
     Dates: start: 20111127, end: 20111129

REACTIONS (1)
  - DISSOCIATIVE IDENTITY DISORDER [None]
